FAERS Safety Report 18072151 (Version 2)
Quarter: 2020Q3

REPORT INFORMATION
  Report Type: Spontaneous
  Country: IE (occurrence: IE)
  Receive Date: 20200727
  Receipt Date: 20200816
  Transmission Date: 20201103
  Serious: Yes (Other)
  Sender: FDA-Public Use
  Company Number: NVSC2020IE204438

PATIENT
  Sex: Male

DRUGS (6)
  1. ESOMEPRAZOLE. [Concomitant]
     Active Substance: ESOMEPRAZOLE MAGNESIUM
     Indication: GASTROINTESTINAL DISORDER PROPHYLAXIS
     Dosage: 40 MG (PATIENT HAD TEMPORARILY STOPPED TAKING)
     Route: 048
  2. ROSUVASTATIN. [Suspect]
     Active Substance: ROSUVASTATIN
     Indication: STENT PLACEMENT
     Dosage: 10 MG
     Route: 065
     Dates: start: 2017
  3. ASPIRIN. [Suspect]
     Active Substance: ASPIRIN
     Indication: STENT PLACEMENT
     Dosage: UNK (HAD BEEN TAKING SINCE THE END OF 2017. RECENTLY CHANGED BRAND)
     Route: 065
     Dates: start: 2017
  4. NUPRIN [Suspect]
     Active Substance: IBUPROFEN
     Indication: STENT PLACEMENT
     Dosage: 75 MG (HAD BEEN TAKING SINCE THE END OF 2017, RECENTLY CHANGED BRAND)
     Route: 048
     Dates: start: 2017
  5. ASPIRIN. [Suspect]
     Active Substance: ASPIRIN
     Dosage: 75 MG
     Route: 048
  6. ROSUVASTATIN. [Suspect]
     Active Substance: ROSUVASTATIN
     Dosage: 10 MG (TAKING SINCE THE END OF 2017, RECENTLY CHANGED BRAND)
     Route: 065
     Dates: start: 2017

REACTIONS (6)
  - Ear congestion [Not Recovered/Not Resolved]
  - Myalgia [Recovering/Resolving]
  - Muscle disorder [Not Recovered/Not Resolved]
  - Tinnitus [Not Recovered/Not Resolved]
  - Hypoacusis [Not Recovered/Not Resolved]
  - Product substitution issue [Unknown]
